FAERS Safety Report 25395794 (Version 1)
Quarter: 2025Q2

REPORT INFORMATION
  Report Type: Spontaneous
  Country: US (occurrence: None)
  Receive Date: 20250603
  Receipt Date: 20250603
  Transmission Date: 20250717
  Serious: Yes (Disabling)
  Sender: FDA-CTU
  Company Number: None

PATIENT
  Age: 67 Year
  Sex: Female
  Weight: 69.75 kg

DRUGS (4)
  1. XIIDRA [Suspect]
     Active Substance: LIFITEGRAST
     Indication: Dry eye
     Dosage: FREQUENCY : TWICE A DAY;?
     Route: 047
     Dates: start: 20241112, end: 20250428
  2. ATORVASTATIN [Concomitant]
     Active Substance: ATORVASTATIN
  3. VITAMIN D [Concomitant]
     Active Substance: VITAMIN D NOS
  4. FISH OIL [Concomitant]
     Active Substance: FISH OIL

REACTIONS (4)
  - Lymphadenopathy [None]
  - Lymph gland infection [None]
  - Palpitations [None]
  - Dizziness [None]

NARRATIVE: CASE EVENT DATE: 20250410
